FAERS Safety Report 19456087 (Version 13)
Quarter: 2022Q1

REPORT INFORMATION
  Report Type: Spontaneous
  Country: CA (occurrence: CA)
  Receive Date: 20210624
  Receipt Date: 20220119
  Transmission Date: 20220424
  Serious: Yes (Hospitalization, Other)
  Sender: FDA-Public Use
  Company Number: CA-CELLTRION INC.-2021CA008578

PATIENT

DRUGS (9)
  1. INFLECTRA [Suspect]
     Active Substance: INFLIXIMAB-DYYB
     Indication: Colitis ulcerative
     Dosage: 10 MG/KG, (HOSPITAL START)Q 0,2,6, WEEK DOSE THEN EVERY 8 WEEKS
     Route: 042
     Dates: start: 20210607, end: 20210913
  2. INFLECTRA [Suspect]
     Active Substance: INFLIXIMAB-DYYB
     Indication: Crohn^s disease
     Dosage: 10 MG/KG (HOSPITAL START)Q 0, 6, WEEK DOSE THEN Q 8 WEEKS
     Route: 042
     Dates: start: 20210607, end: 202109
  3. INFLECTRA [Suspect]
     Active Substance: INFLIXIMAB-DYYB
     Dosage: 10 MG/KG, (HOSPITAL START)Q 0,2,6, WEEK DOSE THEN EVERY 8 WEEKS
     Dates: start: 20210607, end: 20210913
  4. INFLECTRA [Suspect]
     Active Substance: INFLIXIMAB-DYYB
     Dosage: 10 MG/KG, WEEK 2 INFUSION
     Route: 042
     Dates: start: 20210621
  5. INFLECTRA [Suspect]
     Active Substance: INFLIXIMAB-DYYB
     Dosage: 10 MG/KG, URGENT DOSE
     Route: 042
     Dates: start: 20210826
  6. INFLECTRA [Suspect]
     Active Substance: INFLIXIMAB-DYYB
     Dosage: 600 MG (2 WEEKS AFTER LAST INFUSION)
     Route: 042
     Dates: start: 20210913
  7. INFLECTRA [Suspect]
     Active Substance: INFLIXIMAB-DYYB
     Dosage: 10 MG/KG EVERY 4 WEEKS STATUS DISCONTINUED
     Route: 042
     Dates: start: 20210913, end: 20210913
  8. INFLECTRA [Suspect]
     Active Substance: INFLIXIMAB-DYYB
     Dosage: 600 MG (2 WEEKS AFTER LAST INFUSION)
     Route: 042
     Dates: start: 20211018
  9. SOLU-MEDROL [Concomitant]
     Active Substance: METHYLPREDNISOLONE SODIUM SUCCINATE
     Dosage: 7 MG/KG, STARTED DURING HOSPITALIZATION, DOSE IS UNKNOWN
     Route: 065
     Dates: start: 20210601

REACTIONS (6)
  - Condition aggravated [Unknown]
  - Clostridium difficile infection [Recovering/Resolving]
  - Therapy non-responder [Unknown]
  - Off label use [Unknown]
  - Off label use [Unknown]
  - COVID-19 [Unknown]

NARRATIVE: CASE EVENT DATE: 20210101
